FAERS Safety Report 8886422 (Version 2)
Quarter: 2012Q4

REPORT INFORMATION
  Report Type: 
  Country: TW (occurrence: TW)
  Receive Date: 20121105
  Receipt Date: 20121210
  Transmission Date: 20130627
  Serious: Yes (Hospitalization, Disabling, Other)
  Sender: FDA-Public Use
  Company Number: PHHY2012TW100096

PATIENT
  Sex: Male

DRUGS (3)
  1. ZOMETA [Suspect]
     Indication: MULTIPLE MYELOMA
     Dosage: 4 mg, UNK
     Route: 042
     Dates: start: 20110211
  2. ZOMETA [Suspect]
     Dosage: 4 mg, UNK
     Route: 042
     Dates: start: 201108
  3. ZOMETA [Suspect]
     Dosage: 4 mg, UNK
     Route: 042
     Dates: start: 201109

REACTIONS (2)
  - Osteonecrosis of jaw [Recovered/Resolved]
  - Pain [Recovered/Resolved]
